FAERS Safety Report 26188941 (Version 1)
Quarter: 2025Q4

REPORT INFORMATION
  Report Type: Spontaneous
  Country: BR (occurrence: BR)
  Receive Date: 20251223
  Receipt Date: 20251223
  Transmission Date: 20260119
  Serious: Yes (Death)
  Sender: BOEHRINGER INGELHEIM
  Company Number: BR-BoehringerIngelheim-2025-BI-116500

PATIENT
  Age: 8 Year
  Sex: Female

DRUGS (6)
  1. ATROVENT [Suspect]
     Active Substance: IPRATROPIUM BROMIDE
     Indication: Pneumonia
  2. ATROVENT [Suspect]
     Active Substance: IPRATROPIUM BROMIDE
     Indication: Bronchitis
  3. ALBUTEROL [Concomitant]
     Active Substance: ALBUTEROL
     Indication: Pneumonia
  4. ALBUTEROL [Concomitant]
     Active Substance: ALBUTEROL
     Indication: Bronchitis
  5. ALBUTEROL [Concomitant]
     Active Substance: ALBUTEROL
     Indication: Sinusitis
  6. Predisim [Concomitant]
     Indication: Product used for unknown indication

REACTIONS (6)
  - Condition aggravated [Fatal]
  - Skin disorder [Unknown]
  - Dyspnoea [Unknown]
  - Feeling cold [Unknown]
  - Hypothermia [Unknown]
  - Asthenia [Unknown]
